FAERS Safety Report 7411944-0 (Version None)
Quarter: 2011Q2

REPORT INFORMATION
  Report Type: 
  Country: None (occurrence: None)
  Receive Date: 20110408
  Receipt Date: 20110408
  Transmission Date: 20111010
  Serious: Yes (Hospitalization)
  Sender: FDA-Public Use
  Company Number: None

PATIENT
  Sex: Female
  Weight: 58 kg

DRUGS (2)
  1. CARBOPLATIN [Suspect]
     Dosage: 651 MG
     Dates: end: 20110228
  2. PACLITAXEL [Suspect]
     Dosage: 287 MG
     Dates: end: 20110228

REACTIONS (2)
  - CELLULITIS [None]
  - SEROMA [None]
